FAERS Safety Report 24876341 (Version 2)
Quarter: 2025Q1

REPORT INFORMATION
  Report Type: Report from Study
  Country: CA (occurrence: CA)
  Receive Date: 20250123
  Receipt Date: 20250127
  Transmission Date: 20250409
  Serious: Yes (Other)
  Sender: CELLTRION
  Company Number: CA-CELLTRION INC.-2025CA001482

PATIENT

DRUGS (1)
  1. ADALIMUMAB-AATY [Suspect]
     Active Substance: ADALIMUMAB-AATY
     Indication: Crohn^s disease
     Dosage: MAINTENANCE - 80 MG - SC (SUBCUTANEOUS) EVERY 7 DAYS
     Route: 058
     Dates: start: 20231211

REACTIONS (6)
  - Hip arthroplasty [Unknown]
  - Eye operation [Unknown]
  - Urticaria [Unknown]
  - Rash [Unknown]
  - Intentional dose omission [Unknown]
  - Intentional product use issue [Unknown]

NARRATIVE: CASE EVENT DATE: 20240913
